FAERS Safety Report 6711032-2 (Version None)
Quarter: 2010Q2

REPORT INFORMATION
  Report Type: 
  Country: None (occurrence: None)
  Receive Date: 20100505
  Receipt Date: 20100421
  Transmission Date: 20101027
  Serious: No
  Sender: FDA-Public Use
  Company Number: US-JNJFOC-20100405753

PATIENT
  Sex: Female
  Weight: 61.24 kg

DRUGS (6)
  1. FENTANYL CITRATE [Suspect]
     Indication: MIGRAINE
     Route: 062
  2. ZOLOFT [Concomitant]
     Indication: DEPRESSION
     Route: 048
  3. DEPAKOTE [Concomitant]
     Indication: MIGRAINE
     Route: 048
  4. ZANAFLEX [Concomitant]
     Indication: MIGRAINE
     Route: 048
  5. LUNESTA [Concomitant]
     Indication: SLEEP DISORDER
     Route: 048
  6. DIHYDROERGOTAMINE [Concomitant]
     Indication: MIGRAINE
     Route: 065

REACTIONS (3)
  - DRUG PRESCRIBING ERROR [None]
  - INAPPROPRIATE SCHEDULE OF DRUG ADMINISTRATION [None]
  - NIGHT SWEATS [None]
